FAERS Safety Report 8221220-4 (Version None)
Quarter: 2012Q1

REPORT INFORMATION
  Report Type: 
  Country: None (occurrence: None)
  Receive Date: 20120320
  Receipt Date: 20120312
  Transmission Date: 20120608
  Serious: Yes (Other)
  Sender: FDA-Public Use
  Company Number: PHHY2011US35462

PATIENT
  Sex: Male

DRUGS (5)
  1. AMLODIPINE [Concomitant]
     Dosage: 2.5 MG, UNK
  2. MULTI-VITAMINS [Concomitant]
  3. LOVASTATIN [Concomitant]
     Dosage: 10 MG, UNK
  4. GLEEVEC [Suspect]
     Dosage: 400 MG, BID
     Route: 048
  5. BYSTOLIC [Concomitant]
     Dosage: 2.5 MG, UNK

REACTIONS (9)
  - ANAEMIA [None]
  - NEPHROLITHIASIS [None]
  - MUSCLE SPASMS [None]
  - JOINT SWELLING [None]
  - DIARRHOEA [None]
  - EYE SWELLING [None]
  - NAUSEA [None]
  - RASH [None]
  - BONE PAIN [None]
